FAERS Safety Report 23721635 (Version 2)
Quarter: 2024Q2

REPORT INFORMATION
  Report Type: Spontaneous
  Country: CA (occurrence: CA)
  Receive Date: 20240409
  Receipt Date: 20240412
  Transmission Date: 20240716
  Serious: Yes (Other)
  Sender: FDA-Public Use
  Company Number: CA-CELLTRION INC.-2023CA023506

PATIENT

DRUGS (9)
  1. INFLECTRA [Suspect]
     Active Substance: INFLIXIMAB-DYYB
     Indication: Colitis ulcerative
     Dosage: 400 MG, 0, 2, 6 WEEKS THEN EVERY 8 WEEKS (X4 VIALS)
     Route: 042
     Dates: start: 20231020
  2. INFLECTRA [Suspect]
     Active Substance: INFLIXIMAB-DYYB
     Dosage: UNK
     Route: 042
     Dates: start: 20231201
  3. INFLECTRA [Suspect]
     Active Substance: INFLIXIMAB-DYYB
     Dosage: 400 MG, 0, 2, 6 WEEKS, THEN EVERY 8 WEEKS
     Route: 042
     Dates: start: 20240126, end: 20240126
  4. BUPROPION [Concomitant]
     Active Substance: BUPROPION
     Dosage: 100 MG, DAILY
     Route: 048
  5. PANTOPRAZOLE SODIUM [Concomitant]
     Active Substance: PANTOPRAZOLE SODIUM
     Dosage: UNK
  6. PREDNISONE [Concomitant]
     Active Substance: PREDNISONE
     Dosage: 2.5 MG, DAILY
     Route: 048
  7. PROBIOTICS NOS [Concomitant]
     Active Substance: PROBIOTICS NOS
     Dosage: UNK, DAILY
  8. MESALAMINE [Concomitant]
     Active Substance: MESALAMINE
     Dosage: 2 G, 2X/DAY
     Route: 048
  9. SERTRALINE [Concomitant]
     Active Substance: SERTRALINE HYDROCHLORIDE
     Dosage: 75 MG, DAILY
     Route: 048

REACTIONS (10)
  - Multiple sclerosis [Not Recovered/Not Resolved]
  - Condition aggravated [Unknown]
  - COVID-19 [Recovered/Resolved]
  - Oral herpes [Not Recovered/Not Resolved]
  - Rash erythematous [Recovering/Resolving]
  - Dermatitis [Recovering/Resolving]
  - Rash papular [Recovering/Resolving]
  - Musculoskeletal stiffness [Recovered/Resolved]
  - Pain [Recovered/Resolved]
  - Rash [Not Recovered/Not Resolved]

NARRATIVE: CASE EVENT DATE: 20231101
